FAERS Safety Report 7732889-2 (Version None)
Quarter: 2011Q3

REPORT INFORMATION
  Report Type: 
  Country: None (occurrence: None)
  Receive Date: 20110902
  Receipt Date: 20110902
  Transmission Date: 20111222
  Serious: Yes (Disabling)
  Sender: FDA-Public Use
  Company Number: None

PATIENT
  Age: 57 Year
  Sex: Female
  Weight: 54.5 kg

DRUGS (1)
  1. FOSAMAX [Suspect]
     Indication: OSTEOPENIA
     Dates: start: 20000801, end: 20010801

REACTIONS (7)
  - BURNING SENSATION [None]
  - FEELING ABNORMAL [None]
  - DYSAESTHESIA [None]
  - NERVE INJURY [None]
  - SENSATION OF PRESSURE [None]
  - TRIGEMINAL NERVE DISORDER [None]
  - OSTEONECROSIS OF JAW [None]
